FAERS Safety Report 25509064 (Version 1)
Quarter: 2025Q3

REPORT INFORMATION
  Report Type: Spontaneous
  Country: US (occurrence: US)
  Receive Date: 20250703
  Receipt Date: 20250703
  Transmission Date: 20251021
  Serious: Yes (Death)
  Sender: AUROBINDO
  Company Number: US-AUROBINDO-AUR-APL-2025-032471

PATIENT
  Age: 9 Year
  Sex: Female

DRUGS (9)
  1. ONDANSETRON [Suspect]
     Active Substance: ONDANSETRON
     Indication: Product used for unknown indication
     Route: 065
  2. GLYCOPYRROLATE [Suspect]
     Active Substance: GLYCOPYRROLATE
     Indication: Product used for unknown indication
     Route: 065
  3. DEXAMETHASONE [Concomitant]
     Active Substance: DEXAMETHASONE
     Indication: Product used for unknown indication
     Route: 065
  4. HYDROMORPHONE [Concomitant]
     Active Substance: HYDROMORPHONE
     Indication: Product used for unknown indication
     Route: 065
  5. ISOFLURANE [Concomitant]
     Active Substance: ISOFLURANE
     Indication: Product used for unknown indication
     Route: 065
  6. KETOROLAC [Concomitant]
     Active Substance: KETOROLAC TROMETHAMINE
     Indication: Product used for unknown indication
     Route: 065
  7. MIDAZOLAM [Concomitant]
     Active Substance: MIDAZOLAM
     Indication: Product used for unknown indication
     Route: 065
  8. PROPOFOL [Concomitant]
     Active Substance: PROPOFOL
     Indication: Product used for unknown indication
     Route: 065
  9. SEVOFLURANE [Concomitant]
     Active Substance: SEVOFLURANE
     Indication: Product used for unknown indication
     Route: 065

REACTIONS (1)
  - Methaemoglobinaemia [Fatal]
